FAERS Safety Report 6381953-1 (Version None)
Quarter: 2009Q3

REPORT INFORMATION
  Report Type: 
  Country: None (occurrence: None)
  Receive Date: 20090925
  Receipt Date: 20090911
  Transmission Date: 20100115
  Serious: Yes (Hospitalization)
  Sender: FDA-Public Use
  Company Number: 8052007

PATIENT
  Age: 63 Year
  Sex: Female
  Weight: 71.2 kg

DRUGS (7)
  1. CIMZIA [Suspect]
     Indication: CROHN'S DISEASE
     Dosage: 400 MG 1/2W SC
     Route: 058
     Dates: start: 20090810, end: 20090824
  2. SYNTHROID [Concomitant]
  3. BONIVA [Concomitant]
  4. KAPIDEX [Concomitant]
  5. VITAMIN B-12 [Concomitant]
  6. CLONAZEPAM [Concomitant]
  7. VITAMIN D [Concomitant]

REACTIONS (10)
  - BLISTER [None]
  - BURNS FOURTH DEGREE [None]
  - ERYTHEMA [None]
  - FAECAL INCONTINENCE [None]
  - LOSS OF CONSCIOUSNESS [None]
  - NAUSEA [None]
  - PRESYNCOPE [None]
  - PRURITUS [None]
  - URTICARIA [None]
  - VOMITING [None]
